FAERS Safety Report 23950871 (Version 3)
Quarter: 2025Q4

REPORT INFORMATION
  Report Type: Spontaneous
  Country: JP (occurrence: JP)
  Receive Date: 20240607
  Receipt Date: 20251120
  Transmission Date: 20260117
  Serious: Yes (Life-Threatening, Hospitalization, Other)
  Sender: ELI LILLY AND COMPANY
  Company Number: JP-ELI_LILLY_AND_COMPANY-JP202406002803

PATIENT
  Age: 70 Year
  Sex: Female
  Weight: 51.8 kg

DRUGS (5)
  1. CYRAMZA [Suspect]
     Active Substance: RAMUCIRUMAB
     Indication: Colon cancer stage IV
     Dosage: 410 MG, CYCLICAL
     Route: 041
     Dates: start: 20240205, end: 20240304
  2. ABRAXANE [Concomitant]
     Active Substance: PACLITAXEL
     Indication: Colon cancer stage IV
  3. IRINOTECAN [Concomitant]
     Active Substance: IRINOTECAN
     Indication: Colon cancer stage IV
     Dosage: 200 MG, CYCLICAL
     Route: 041
     Dates: start: 20240205, end: 20240311
  4. LEVOLEUCOVORIN CALCIUM [Concomitant]
     Active Substance: LEVOLEUCOVORIN CALCIUM
     Indication: Colon cancer stage IV
     Dosage: 275 MG, CYCLICAL
     Route: 041
     Dates: start: 20240215, end: 20240311
  5. FLUOROURACIL [Concomitant]
     Active Substance: FLUOROURACIL
     Indication: Colon cancer stage IV
     Dosage: 3500 MG, CYCLICAL
     Route: 041
     Dates: start: 20240205, end: 20240312

REACTIONS (5)
  - Cardiac failure acute [Recovered/Resolved with Sequelae]
  - Hypertension [Not Recovered/Not Resolved]
  - Cardiac failure chronic [Recovering/Resolving]
  - Thrombophlebitis migrans [Recovered/Resolved]
  - Malignant neoplasm progression [Unknown]

NARRATIVE: CASE EVENT DATE: 20240312
